FAERS Safety Report 18150025 (Version 2)
Quarter: 2021Q1

REPORT INFORMATION
  Report Type: Spontaneous
  Country: US (occurrence: US)
  Receive Date: 20200814
  Receipt Date: 20210302
  Transmission Date: 20210419
  Serious: Yes (Other)
  Sender: FDA-Public Use
  Company Number: US-ASTRAZENECA-2020SE99314

PATIENT
  Age: 21623 Day
  Sex: Female
  Weight: 84.8 kg

DRUGS (32)
  1. PEPCID [Concomitant]
     Active Substance: FAMOTIDINE
     Dates: start: 20170309
  2. ALKA?SELTZER [Concomitant]
     Active Substance: ANHYDROUS CITRIC ACID\ASPIRIN\SODIUM BICARBONATE
     Dosage: 2 TABLETS TWICE DAILY
     Dates: start: 2014, end: 2016
  3. CYCLOBENZAPRINE. [Concomitant]
     Active Substance: CYCLOBENZAPRINE
  4. METRONIDAZOLE. [Concomitant]
     Active Substance: METRONIDAZOLE
  5. CRESTOR [Concomitant]
     Active Substance: ROSUVASTATIN CALCIUM
  6. AMLODIPINE [Concomitant]
     Active Substance: AMLODIPINE BESYLATE
  7. IBUPROFEN. [Concomitant]
     Active Substance: IBUPROFEN
  8. NEXIUM [Suspect]
     Active Substance: ESOMEPRAZOLE MAGNESIUM
     Indication: GASTROOESOPHAGEAL REFLUX DISEASE
     Dosage: MR
     Route: 048
     Dates: start: 20151202
  9. ZANTAC [Concomitant]
     Active Substance: RANITIDINE HYDROCHLORIDE
     Dates: start: 2010, end: 2015
  10. AMOXICILLIN. [Concomitant]
     Active Substance: AMOXICILLIN
     Indication: INFECTION
     Dates: start: 2015, end: 2017
  11. FAMOTIDINE. [Concomitant]
     Active Substance: FAMOTIDINE
     Dates: start: 2015, end: 2017
  12. HYDROCHLOROTHIAZIDE. [Concomitant]
     Active Substance: HYDROCHLOROTHIAZIDE
  13. TRIAMTERENE. [Concomitant]
     Active Substance: TRIAMTERENE
  14. PRAVASTATIN. [Concomitant]
     Active Substance: PRAVASTATIN
  15. OXYBUTYNIN. [Concomitant]
     Active Substance: OXYBUTYNIN CHLORIDE
  16. NEXIUM [Suspect]
     Active Substance: ESOMEPRAZOLE MAGNESIUM
     Indication: GASTROOESOPHAGEAL REFLUX DISEASE
     Route: 048
     Dates: start: 201611, end: 201709
  17. NEXIUM [Suspect]
     Active Substance: ESOMEPRAZOLE MAGNESIUM
     Indication: GASTROOESOPHAGEAL REFLUX DISEASE
     Dosage: GENERIC
     Route: 065
     Dates: start: 2012
  18. IBUPROFEN. [Concomitant]
     Active Substance: IBUPROFEN
     Indication: PAIN
     Dates: start: 2015, end: 2017
  19. AMITRIPTYLINE [Concomitant]
     Active Substance: AMITRIPTYLINE
  20. METHOCARBAMOL. [Concomitant]
     Active Substance: METHOCARBAMOL
  21. CLARITHROMYCIN. [Concomitant]
     Active Substance: CLARITHROMYCIN
  22. HYOSCYAMINE. [Concomitant]
     Active Substance: HYOSCYAMINE
  23. FLUCONAZOLE. [Concomitant]
     Active Substance: FLUCONAZOLE
  24. NEXIUM [Suspect]
     Active Substance: ESOMEPRAZOLE MAGNESIUM
     Indication: GASTROOESOPHAGEAL REFLUX DISEASE
     Dosage: PFS
     Route: 048
     Dates: start: 2016, end: 2017
  25. NEXIUM 24HR [Suspect]
     Active Substance: ESOMEPRAZOLE MAGNESIUM
     Indication: GASTROOESOPHAGEAL REFLUX DISEASE
     Route: 048
     Dates: start: 2015, end: 2017
  26. KLOR?CON [Concomitant]
     Active Substance: POTASSIUM CHLORIDE
  27. DICYCLOMINE [Concomitant]
     Active Substance: DICYCLOMINE HYDROCHLORIDE
  28. PRILOSEC [Suspect]
     Active Substance: OMEPRAZOLE MAGNESIUM
     Indication: GASTROOESOPHAGEAL REFLUX DISEASE
     Dosage: GENERIC
     Route: 065
     Dates: start: 2017
  29. CHANTIX [Concomitant]
     Active Substance: VARENICLINE TARTRATE
  30. CLOTRIMAZOLE. [Concomitant]
     Active Substance: CLOTRIMAZOLE
  31. VALSARTAN. [Concomitant]
     Active Substance: VALSARTAN
  32. FAMOTIDINE. [Concomitant]
     Active Substance: FAMOTIDINE

REACTIONS (1)
  - Acute kidney injury [Not Recovered/Not Resolved]

NARRATIVE: CASE EVENT DATE: 20171018
